FAERS Safety Report 21574739 (Version 2)
Quarter: 2022Q4

REPORT INFORMATION
  Report Type: Spontaneous
  Country: JP (occurrence: JP)
  Receive Date: 20221109
  Receipt Date: 20221202
  Transmission Date: 20230113
  Serious: Yes (Other)
  Sender: FDA-Public Use
  Company Number: JP-BRISTOL-MYERS SQUIBB COMPANY-2022-134562

PATIENT
  Age: 8 Decade
  Sex: Male

DRUGS (4)
  1. YERVOY [Suspect]
     Active Substance: IPILIMUMAB
     Indication: Lung neoplasm malignant
     Route: 041
     Dates: start: 20220304, end: 20220826
  2. OPDIVO [Suspect]
     Active Substance: NIVOLUMAB
     Indication: Lung neoplasm malignant
     Route: 041
     Dates: start: 20220304, end: 20221007
  3. CARBOPLATIN [Suspect]
     Active Substance: CARBOPLATIN
     Indication: Lung neoplasm malignant
     Route: 065
     Dates: start: 20220304, end: 20221008
  4. PEMETREXED [Suspect]
     Active Substance: PEMETREXED
     Indication: Lung neoplasm malignant
     Route: 065
     Dates: start: 20220304, end: 20221008

REACTIONS (3)
  - Immune-mediated enterocolitis [Recovered/Resolved]
  - Lung opacity [Unknown]
  - COVID-19 [Unknown]

NARRATIVE: CASE EVENT DATE: 20220506
